FAERS Safety Report 19806829 (Version 1)
Quarter: 2021Q3

REPORT INFORMATION
  Report Type: Report from Study
  Country: NP (occurrence: NP)
  Receive Date: 20210908
  Receipt Date: 20210908
  Transmission Date: 20211014
  Serious: Yes (Death, Other)
  Sender: FDA-Public Use
  Company Number: PHHY2017NP143492

PATIENT
  Age: 81 Year
  Sex: Female

DRUGS (1)
  1. GLIVEC [Suspect]
     Active Substance: IMATINIB MESYLATE
     Indication: CHRONIC MYELOID LEUKAEMIA
     Dosage: 400 MG (4 X 100MG TABLETS)
     Route: 065

REACTIONS (4)
  - Fall [Unknown]
  - Nasopharyngitis [Unknown]
  - Death [Fatal]
  - Spinal fracture [Unknown]

NARRATIVE: CASE EVENT DATE: 20210106
